FAERS Safety Report 8619429-0 (Version None)
Quarter: 2012Q3

REPORT INFORMATION
  Report Type: 
  Country: None (occurrence: None)
  Receive Date: 20120824
  Receipt Date: 20120816
  Transmission Date: 20120928
  Serious: Yes (Life-Threatening, Hospitalization)
  Sender: FDA-Public Use
  Company Number: CN-BRISTOL-MYERS SQUIBB COMPANY-16857302

PATIENT
  Age: 45 Year
  Sex: Male
  Weight: 64 kg

DRUGS (4)
  1. CETUXIMAB [Suspect]
     Indication: COLORECTAL CANCER METASTATIC
     Dosage: INT:31JUL12
     Route: 042
     Dates: start: 20110127
  2. OXALIPLATIN [Suspect]
     Indication: COLORECTAL CANCER METASTATIC
     Dosage: INT:31JUL12
     Route: 042
     Dates: start: 20110127
  3. LEUCOVORIN CALCIUM [Suspect]
     Indication: COLORECTAL CANCER METASTATIC
     Dosage: INT:31JUL12
     Route: 042
     Dates: start: 20110127
  4. FLUOROURACIL [Suspect]
     Indication: COLORECTAL CANCER METASTATIC
     Dosage: BOLOUS:704MG INF:2112MG INT:31JUL12
     Route: 040
     Dates: start: 20110127

REACTIONS (1)
  - VENOUS THROMBOSIS LIMB [None]
